FAERS Safety Report 23074262 (Version 4)
Quarter: 2025Q1

REPORT INFORMATION
  Report Type: Report from Study
  Country: US (occurrence: US)
  Receive Date: 20231017
  Receipt Date: 20250228
  Transmission Date: 20250408
  Serious: Yes (Other)
  Sender: AVADEL CNS PHARMACEUTICALS, LLC
  Company Number: US-AVADEL CNS PHARMACEUTICALS, LLC-2023AVA00225

PATIENT
  Sex: Female
  Weight: 126.98 kg

DRUGS (16)
  1. LUMRYZ [Suspect]
     Active Substance: SODIUM OXYBATE
     Indication: Narcolepsy
     Dosage: 9 G, ONCE NIGHTLY
     Route: 048
  2. LUMRYZ [Suspect]
     Active Substance: SODIUM OXYBATE
     Indication: Cataplexy
     Dosage: 9 G, ONCE NIGHTLY
     Route: 048
  3. HOMEOPATHICS [Suspect]
     Active Substance: HOMEOPATHICS
     Dates: start: 202309
  4. WAKIX [Suspect]
     Active Substance: PITOLISANT HYDROCHLORIDE
     Indication: Somnolence
     Dosage: ^4^ MG, EVERY OTHER DAY
     Dates: start: 202407, end: 2024
  5. WAKIX [Suspect]
     Active Substance: PITOLISANT HYDROCHLORIDE
     Indication: Narcolepsy
     Dosage: ^4^ MG, 1X/DAY
     Dates: start: 2024, end: 2024
  6. WAKIX [Suspect]
     Active Substance: PITOLISANT HYDROCHLORIDE
     Dates: start: 2024, end: 2024
  7. MEGA IGG2000 [Concomitant]
  8. VITAMIN D NOS [Concomitant]
     Active Substance: CHOLECALCIFEROL\ERGOCALCIFEROL
  9. LAURICIDIN [Concomitant]
  10. RAMIPRIL [Concomitant]
     Active Substance: RAMIPRIL
     Dosage: 5 MG, 2X/DAY
  11. RAMIPRIL [Concomitant]
     Active Substance: RAMIPRIL
     Dosage: 10 MG, 1X/DAY
  12. GABAPENTIN [Concomitant]
     Active Substance: GABAPENTIN
     Dosage: 2 DOSAGE FORM, 3X/DAY
  13. GABAPENTIN [Concomitant]
     Active Substance: GABAPENTIN
  14. BUPROPION HYDROCHLORIDE [Concomitant]
     Active Substance: BUPROPION HYDROCHLORIDE
     Dosage: 150 MG, 1X/DAY, IN THE MORNING
  15. HYDROCHLOROTHIAZIDE [Concomitant]
     Active Substance: HYDROCHLOROTHIAZIDE
     Dosage: 12.5 MG, 1X/DAY
  16. METOPROLOL SUCCINATE [Concomitant]
     Active Substance: METOPROLOL SUCCINATE
     Dosage: 15 MG, 1X/DAY

REACTIONS (13)
  - Central nervous system infection [Unknown]
  - Endovenous ablation [Unknown]
  - Middle insomnia [Recovered/Resolved]
  - Insomnia [Recovered/Resolved]
  - Abnormal dreams [Recovered/Resolved]
  - Vertigo [Unknown]
  - Feeling abnormal [Unknown]
  - Drug interaction [Not Recovered/Not Resolved]
  - Dry mouth [Not Recovered/Not Resolved]
  - Memory impairment [Unknown]
  - Tremor [Unknown]
  - Therapeutic product effect incomplete [Not Recovered/Not Resolved]
  - Intentional dose omission [Recovered/Resolved]

NARRATIVE: CASE EVENT DATE: 20230101
